FAERS Safety Report 15416841 (Version 4)
Quarter: 2018Q4

REPORT INFORMATION
  Report Type: Spontaneous
  Country: US (occurrence: US)
  Receive Date: 20180924
  Receipt Date: 20181031
  Transmission Date: 20190204
  Serious: Yes (Hospitalization, Other)
  Sender: FDA-Public Use
  Company Number: US-AMGEN-USASP2018131205

PATIENT
  Age: 45 Year
  Sex: Male

DRUGS (5)
  1. EPOGEN [Suspect]
     Active Substance: ERYTHROPOIETIN
     Dosage: 10000 UNIT, 3 TIMES/WK
     Route: 042
     Dates: start: 20180910, end: 20180914
  2. EPOGEN [Suspect]
     Active Substance: ERYTHROPOIETIN
     Dosage: 6000 UNIT, 3 TIMES/WK
     Route: 042
     Dates: start: 20180330, end: 20180330
  3. LINEZOLID. [Concomitant]
     Active Substance: LINEZOLID
     Dosage: UNK
     Dates: start: 20180909, end: 20180910
  4. EPOGEN [Suspect]
     Active Substance: ERYTHROPOIETIN
     Indication: NEPHROGENIC ANAEMIA
     Dosage: 2000 UNIT, 3 TIMES/WK
     Route: 042
     Dates: start: 20180124, end: 20180124
  5. EPOGEN [Suspect]
     Active Substance: ERYTHROPOIETIN
     Dosage: 4000 UNIT, 3 TIMES/WK
     Route: 042
     Dates: start: 20180905, end: 20180905

REACTIONS (3)
  - Aplasia pure red cell [Unknown]
  - Adverse event [Not Recovered/Not Resolved]
  - Drug effect decreased [Unknown]

NARRATIVE: CASE EVENT DATE: 2018
